FAERS Safety Report 6651236-0 (Version None)
Quarter: 2010Q1

REPORT INFORMATION
  Report Type: 
  Country: None (occurrence: None)
  Receive Date: 20100325
  Receipt Date: 20100315
  Transmission Date: 20100710
  Serious: Yes (Other)
  Sender: FDA-Public Use
  Company Number: US-AMGEN-QUU398178

PATIENT
  Sex: Female

DRUGS (5)
  1. NPLATE [Suspect]
     Indication: IDIOPATHIC THROMBOCYTOPENIC PURPURA
     Dates: start: 20081215, end: 20090629
  2. CORTICOSTEROIDS [Concomitant]
     Dates: start: 20081215, end: 20090212
  3. RITUXIMAB [Concomitant]
     Dates: start: 20090218, end: 20090311
  4. WINRHO [Concomitant]
     Dates: start: 20090108, end: 20090129
  5. PREDNISONE [Concomitant]

REACTIONS (4)
  - BONE PAIN [None]
  - THERAPEUTIC RESPONSE DECREASED [None]
  - THROMBOCYTOPENIA [None]
  - UPPER LIMB FRACTURE [None]
